FAERS Safety Report 16237637 (Version 1)
Quarter: 2019Q2

REPORT INFORMATION
  Report Type: Spontaneous
  Country: DE (occurrence: DE)
  Receive Date: 20190425
  Receipt Date: 20190425
  Transmission Date: 20190711
  Serious: Yes (Congenital Anomaly, Other)
  Sender: FDA-Public Use
  Company Number: DE-TEVA-2019-DE-1042138

PATIENT
  Age: 9 Week
  Sex: Male

DRUGS (1)
  1. GLIBENCLAMIDE [Suspect]
     Active Substance: GLYBURIDE
     Indication: NEONATAL DIABETES MELLITUS
     Dosage: 0.0125 MG/KG (LOW DOSES)
     Route: 065

REACTIONS (2)
  - Congenital absence of bile ducts [Recovered/Resolved]
  - Cholestasis [Recovered/Resolved]
